FAERS Safety Report 9097055 (Version 1)
Quarter: 2013Q1

REPORT INFORMATION
  Report Type: Spontaneous
  Country: IN (occurrence: None)
  Receive Date: 20130123
  Receipt Date: 20130123
  Transmission Date: 20140127
  Serious: Yes (Death, Hospitalization)
  Sender: FDA-Public Use
  Company Number: VAL_01249_2013

PATIENT
  Age: 32 Year
  Sex: Female

DRUGS (4)
  1. CARBAMAZEPINE (CARBAMAZEPINE) CHEWABLE TABLET [Suspect]
     Indication: BACK PAIN
     Dates: start: 201204
  2. CARBAMAZEPINE (CARBAMAZEPINE) CHEWABLE TABLET [Suspect]
     Indication: HEADACHE
     Dates: start: 201204
  3. VITAMIN B COMPLEX [Suspect]
     Indication: PRODUCT USED FOR UNKNOWN INDICATION
     Dosage: [THREE INJECTIONS WERE GIVEN INTRAVENOUSLY ON ALTERNATE DAYS] INTRAVENOUS (NOT OTHERWISE SPECIFIED))
     Dates: start: 201204
  4. FEXOFENADINE [Concomitant]

REACTIONS (4)
  - Septic shock [None]
  - Toxic epidermal necrolysis [None]
  - Eye discharge [None]
  - Eye pruritus [None]
